FAERS Safety Report 9828711 (Version 2)
Quarter: 2014Q1

REPORT INFORMATION
  Report Type: Spontaneous
  Country: US (occurrence: US)
  Receive Date: 20140117
  Receipt Date: 20140117
  Transmission Date: 20141002
  Serious: Yes (Other)
  Sender: FDA-Public Use
  Company Number: US-ALLERGAN-1400356US

PATIENT
  Age: 59 Year
  Sex: Female

DRUGS (8)
  1. BOTOX COSMETIC [Suspect]
     Indication: SKIN WRINKLING
     Dosage: UNK, SINGLE
     Route: 030
     Dates: start: 20131213, end: 20131213
  2. BOTOX COSMETIC [Suspect]
     Indication: SKIN WRINKLING
     Dosage: UNK
     Route: 030
     Dates: start: 20131126, end: 20131126
  3. BOTOX COSMETIC [Suspect]
     Indication: SKIN WRINKLING
  4. ALPRAZOLAM [Concomitant]
     Indication: SLEEP DISORDER
     Dosage: 1 MG, QHS, PRN
     Route: 048
  5. LORTAB                             /00607101/ [Concomitant]
     Indication: BACK PAIN
     Dosage: UNK UNK, PRN
     Route: 048
  6. CYTOTEC [Concomitant]
     Indication: GASTROINTESTINAL MOTILITY DISORDER
     Dosage: UNK UNK, BID
     Route: 048
     Dates: start: 2009
  7. GEMFIBROZIL [Concomitant]
     Indication: BLOOD TRIGLYCERIDES INCREASED
  8. LEVOTHYROXINE [Concomitant]
     Indication: HYPOTHYROIDISM
     Dosage: 112 ?G, UNK
     Route: 048

REACTIONS (27)
  - Herpes zoster [Unknown]
  - Dyspnoea [Unknown]
  - Tremor [Recovered/Resolved]
  - Pollakiuria [Not Recovered/Not Resolved]
  - Brow ptosis [Unknown]
  - Dyspnoea [Unknown]
  - Restlessness [Unknown]
  - Dysphonia [Unknown]
  - Oropharyngeal pain [Unknown]
  - Restlessness [Unknown]
  - Cough [Unknown]
  - Rhinorrhoea [Unknown]
  - Choking sensation [Unknown]
  - Pharyngeal erythema [Unknown]
  - Flushing [Unknown]
  - Sensation of pressure [Not Recovered/Not Resolved]
  - Musculoskeletal discomfort [Unknown]
  - Anxiety [Unknown]
  - Panic attack [Unknown]
  - Feeling of body temperature change [Unknown]
  - Therapeutic response unexpected [Unknown]
  - Off label use [Unknown]
  - Head discomfort [Unknown]
  - Tension headache [Unknown]
  - Rash macular [Unknown]
  - Headache [Unknown]
  - Muscular weakness [Unknown]
